APPROVED DRUG PRODUCT: CARBAMAZEPINE
Active Ingredient: CARBAMAZEPINE
Strength: 400MG
Dosage Form/Route: TABLET, EXTENDED RELEASE;ORAL
Application: A212948 | Product #003 | TE Code: AB
Applicant: ANBISON LABORATORY CO LTD
Approved: Sep 30, 2021 | RLD: No | RS: No | Type: RX